FAERS Safety Report 5194703-1 (Version None)
Quarter: 2006Q4

REPORT INFORMATION
  Report Type: 
  Country: None (occurrence: None)
  Receive Date: 20061229
  Receipt Date: 20061114
  Transmission Date: 20070319
  Serious: Yes (Hospitalization, Other)
  Sender: FDA-Public Use
  Company Number: PHBS2006JP17842

PATIENT
  Age: 80 Year
  Sex: Male
  Weight: 45 kg

DRUGS (10)
  1. NEORAL [Suspect]
     Indication: MYASTHENIA GRAVIS
     Dosage: 50 MG/DAY
     Route: 048
     Dates: start: 20061020, end: 20061102
  2. NEORAL [Suspect]
     Dosage: 75 MG/DAY
     Route: 048
     Dates: start: 20060824, end: 20061019
  3. PREDONINE [Concomitant]
     Indication: MYASTHENIA GRAVIS
     Dosage: 30 MG/DAY
     Route: 048
     Dates: start: 20051221
  4. SUCRALFATE [Concomitant]
     Indication: GASTRITIS
     Dosage: 3 G/DAY
     Route: 048
     Dates: start: 19990405
  5. LAC B [Concomitant]
     Indication: DIARRHOEA
     Dosage: 3 G/DAY
     Route: 048
     Dates: start: 19990405
  6. CYANOCOBALAMIN [Concomitant]
     Indication: VITAMIN SUPPLEMENTATION
     Dosage: 1.5 MG/DAY
     Route: 048
     Dates: start: 19990405
  7. WASSER V GRAN. [Concomitant]
     Indication: VITAMIN SUPPLEMENTATION
     Dosage: 3 G/DAY
     Route: 048
     Dates: start: 19990405
  8. ONEALFA [Concomitant]
     Indication: OSTEOPOROSIS
     Dosage: 1.0 UG/DAY
     Route: 048
     Dates: start: 19990405
  9. TAKEPRON [Concomitant]
     Indication: PROPHYLAXIS AGAINST GASTROINTESTINAL ULCER
     Dosage: 15 MG/DAY
     Route: 048
     Dates: start: 20060126
  10. FLORINEF [Concomitant]
     Indication: DIZZINESS POSTURAL
     Dosage: 0.05 MG/DAY
     Route: 048
     Dates: start: 20060622

REACTIONS (4)
  - BLOOD PRESSURE SYSTOLIC INCREASED [None]
  - FATIGUE [None]
  - HYPERTENSION [None]
  - MYASTHENIA GRAVIS [None]
